FAERS Safety Report 7344619-7 (Version None)
Quarter: 2011Q1

REPORT INFORMATION
  Report Type: 
  Country: None (occurrence: None)
  Receive Date: 20110308
  Receipt Date: 20110308
  Transmission Date: 20110831
  Serious: No
  Sender: FDA-Public Use
  Company Number: None

PATIENT
  Age: 11 Year
  Sex: Male
  Weight: 36.2878 kg

DRUGS (1)
  1. OMNICEF [Suspect]
     Indication: STREPTOCOCCUS TEST POSITIVE
     Dosage: ONE TEASPOONFULL -5ML- EVERY 12 HOURS
     Dates: start: 20110202, end: 20110203

REACTIONS (9)
  - SERUM SICKNESS [None]
  - ARTHRALGIA [None]
  - HEART RATE INCREASED [None]
  - FATIGUE [None]
  - ASTHENIA [None]
  - NAUSEA [None]
  - RASH GENERALISED [None]
  - PYREXIA [None]
  - URTICARIA [None]
